FAERS Safety Report 15754575 (Version 1)
Quarter: 2018Q4

REPORT INFORMATION
  Report Type: Report from Study
  Country: ES (occurrence: ES)
  Receive Date: 20181224
  Receipt Date: 20181224
  Transmission Date: 20190205
  Serious: Yes (Life-Threatening, Hospitalization)
  Sender: FDA-Public Use
  Company Number: ES-TEVA-2018-ES-990249

PATIENT
  Age: 86 Year
  Sex: Female

DRUGS (6)
  1. PAROXETINA (2586A) [Suspect]
     Active Substance: PAROXETINE
     Dosage: 20 MG
     Route: 048
     Dates: start: 20101223, end: 20180103
  2. DAFIRO 10 MG/160 MG COMPRIMIDOS RECUBIERTOS CON PELICULA, 28 COMPRIMID [Interacting]
     Active Substance: AMLODIPINE BESYLATE
     Indication: HYPERTENSION
     Route: 048
     Dates: start: 20140709, end: 20180103
  3. ESIDREX [Interacting]
     Active Substance: HYDROCHLOROTHIAZIDE
     Indication: HYPERTENSION
     Dosage: 50 MG
     Route: 048
     Dates: start: 20120713, end: 20180103
  4. METFORMINA (1359A) [Concomitant]
     Active Substance: METFORMIN HYDROCHLORIDE
     Indication: DIABETES MELLITUS
     Dosage: 425 MG
     Route: 048
     Dates: start: 20161104, end: 20180103
  5. AMIODARONA HIDROCLORURO (392CH) [Interacting]
     Active Substance: AMIODARONE
     Indication: ATRIAL FIBRILLATION
     Route: 048
     Dates: start: 20120510, end: 20180103
  6. LORAZEPAM (1864A) [Concomitant]
     Active Substance: LORAZEPAM
     Dosage: 0.5 MG
     Route: 048
     Dates: start: 20120510, end: 20180103

REACTIONS (2)
  - Drug interaction [Unknown]
  - Ventricular tachycardia [Recovered/Resolved]

NARRATIVE: CASE EVENT DATE: 20180103
